FAERS Safety Report 13954412 (Version 2)
Quarter: 2017Q4

REPORT INFORMATION
  Report Type: Report from Study
  Country: CN (occurrence: CN)
  Receive Date: 20170911
  Receipt Date: 20171003
  Transmission Date: 20180320
  Serious: Yes (Hospitalization, Other)
  Sender: FDA-Public Use
  Company Number: CN-ASTELLAS-2016US026113

PATIENT
  Sex: Female

DRUGS (1)
  1. ERLOTINIB [Suspect]
     Active Substance: ERLOTINIB
     Indication: NON-SMALL CELL LUNG CANCER
     Route: 048
     Dates: start: 20130914

REACTIONS (6)
  - Ocular hyperaemia [Unknown]
  - Movement disorder [Unknown]
  - Lower limb fracture [Unknown]
  - Fall [Unknown]
  - Gait inability [Unknown]
  - Pyrexia [Unknown]
